FAERS Safety Report 18816414 (Version 3)
Quarter: 2021Q1

REPORT INFORMATION
  Report Type: Spontaneous
  Country: US (occurrence: US)
  Receive Date: 20210201
  Receipt Date: 20210302
  Transmission Date: 20210419
  Serious: No
  Sender: FDA-Public Use
  Company Number: US-AMGEN-USASP2021014214

PATIENT
  Age: 47 Year
  Sex: Female

DRUGS (23)
  1. METFORMIN [Concomitant]
     Active Substance: METFORMIN HYDROCHLORIDE
  2. LEVOTHYROXINE. [Concomitant]
     Active Substance: LEVOTHYROXINE
  3. TYLENOL [Concomitant]
     Active Substance: ACETAMINOPHEN
  4. LISINOPRIL. [Concomitant]
     Active Substance: LISINOPRIL
  5. FOLIC ACID. [Concomitant]
     Active Substance: FOLIC ACID
     Dosage: UNK
  6. ADVIL [Concomitant]
     Active Substance: IBUPROFEN
  7. CYMBALTA [Concomitant]
     Active Substance: DULOXETINE HYDROCHLORIDE
     Dosage: UNK
  8. METHOTREXATE. [Concomitant]
     Active Substance: METHOTREXATE
  9. MELOXICAM. [Concomitant]
     Active Substance: MELOXICAM
  10. HUMIRA [Suspect]
     Active Substance: ADALIMUMAB
     Indication: RHEUMATOID ARTHRITIS
     Dosage: UNK
     Route: 058
  11. COSENTYX [Suspect]
     Active Substance: SECUKINUMAB
     Indication: PRODUCT USED FOR UNKNOWN INDICATION
     Route: 065
  12. TIZANIDINE. [Concomitant]
     Active Substance: TIZANIDINE
  13. HYDROCHLOROTHIAZIDE. [Concomitant]
     Active Substance: HYDROCHLOROTHIAZIDE
  14. ATORVASTATIN [Concomitant]
     Active Substance: ATORVASTATIN
  15. ENBREL [Suspect]
     Active Substance: ETANERCEPT
     Indication: PRODUCT USED FOR UNKNOWN INDICATION
     Dosage: UNK
     Route: 065
  16. VITAMIN B12 [Concomitant]
     Active Substance: CYANOCOBALAMIN
  17. CINNAMON [CINNAMOMUM VERUM] [Concomitant]
  18. TRAZODONE [Concomitant]
     Active Substance: TRAZODONE HYDROCHLORIDE
     Dosage: UNK
  19. CODINE LINCTUS [Concomitant]
  20. BIOTIN [Concomitant]
     Active Substance: BIOTIN
  21. GABAPENTIN. [Concomitant]
     Active Substance: GABAPENTIN
  22. SUMATRIPTAN. [Concomitant]
     Active Substance: SUMATRIPTAN
  23. VITAMIN E [Concomitant]
     Active Substance: .ALPHA.-TOCOPHEROL
     Dosage: UNK

REACTIONS (19)
  - Arthralgia [Unknown]
  - Swollen tongue [Unknown]
  - Therapeutic product effect incomplete [Unknown]
  - Psoriasis [Unknown]
  - Hypertension [Unknown]
  - Drug hypersensitivity [Unknown]
  - Hypersensitivity [Unknown]
  - Headache [Unknown]
  - Dysarthria [Unknown]
  - Therapeutic response shortened [Unknown]
  - Chest discomfort [Unknown]
  - Injection site pain [Unknown]
  - Joint swelling [Unknown]
  - Urticaria [Unknown]
  - Blood glucose increased [Unknown]
  - Drug ineffective [Unknown]
  - Gingival pain [Unknown]
  - Pruritus [Unknown]
  - Rash [Unknown]
